FAERS Safety Report 23279796 (Version 2)
Quarter: 2024Q1

REPORT INFORMATION
  Report Type: Spontaneous
  Country: CA (occurrence: CA)
  Receive Date: 20231209
  Receipt Date: 20240131
  Transmission Date: 20240410
  Serious: Yes (Hospitalization, Other)
  Sender: FDA-Public Use
  Company Number: CA-CELLTRION INC.-2023CA021527

PATIENT

DRUGS (3)
  1. INFLECTRA [Suspect]
     Active Substance: INFLIXIMAB-DYYB
     Indication: Colitis ulcerative
     Dosage: 600 MG. Q 0, 2, 6, THEN EVERY 8 WEEKS, WEEK 0 DOSE AT HOSPITAL
     Route: 042
     Dates: start: 20231024
  2. INFLECTRA [Suspect]
     Active Substance: INFLIXIMAB-DYYB
     Dosage: 600 MG, AFTER 1 WEEK AND 6 DAYS (WEEK 2)
     Route: 042
     Dates: start: 20231106
  3. PREDNISONE [Concomitant]
     Active Substance: PREDNISONE
     Dosage: UNK

REACTIONS (4)
  - Colectomy [Unknown]
  - Sleep disorder [Not Recovered/Not Resolved]
  - Heart rate increased [Not Recovered/Not Resolved]
  - Blood pressure diastolic decreased [Recovered/Resolved]

NARRATIVE: CASE EVENT DATE: 20230101
